FAERS Safety Report 7456054-1 (Version None)
Quarter: 2011Q2

REPORT INFORMATION
  Report Type: 
  Country: None (occurrence: None)
  Receive Date: 20110503
  Receipt Date: 20110428
  Transmission Date: 20111010
  Serious: No
  Sender: FDA-Public Use
  Company Number: US-PFIZER INC-2011092032

PATIENT
  Sex: Male

DRUGS (4)
  1. ADVIL LIQUI-GELS [Suspect]
     Indication: SNEEZING
     Dosage: 3 TEASPOONS
     Route: 048
  2. ADVIL LIQUI-GELS [Suspect]
     Indication: HYPERSENSITIVITY
  3. PROMETHAZINE [Suspect]
     Indication: HYPERSENSITIVITY
  4. PROMETHAZINE [Suspect]
     Indication: SNEEZING
     Dosage: UNK

REACTIONS (1)
  - HYPERSENSITIVITY [None]
